FAERS Safety Report 5551316-7 (Version None)
Quarter: 2007Q4

REPORT INFORMATION
  Report Type: 
  Country: None (occurrence: None)
  Receive Date: 20071212
  Receipt Date: 20070528
  Transmission Date: 20080405
  Serious: No
  Sender: FDA-Public Use
  Company Number: US-AMGEN-KDL219128

PATIENT
  Sex: Female
  Weight: 94.4 kg

DRUGS (12)
  1. ENBREL [Suspect]
     Indication: RHEUMATOID ARTHRITIS
     Route: 058
     Dates: start: 20061008
  2. ZETIA [Suspect]
     Dates: start: 20070329, end: 20070406
  3. METHOTREXATE [Concomitant]
     Dates: start: 20060901
  4. FOLIC ACID [Concomitant]
     Dates: start: 20060829
  5. ZANAFLEX [Concomitant]
  6. METFORMIN HCL [Concomitant]
  7. SYNTHROID [Concomitant]
  8. IBUPROFEN [Concomitant]
  9. PREMARIN [Concomitant]
  10. VITAMIN CAP [Concomitant]
  11. OMEGA 3 [Concomitant]
  12. LISINOPRIL [Concomitant]
     Dates: start: 20070329, end: 20070406

REACTIONS (8)
  - BACK PAIN [None]
  - INJECTION SITE BRUISING [None]
  - INJECTION SITE ERYTHEMA [None]
  - INJECTION SITE PAIN [None]
  - JOINT STIFFNESS [None]
  - MUSCULOSKELETAL STIFFNESS [None]
  - MYALGIA [None]
  - RHEUMATOID ARTHRITIS [None]
